FAERS Safety Report 15214020 (Version 2)
Quarter: 2018Q3

REPORT INFORMATION
  Report Type: Report from Study
  Country: US (occurrence: US)
  Receive Date: 20180730
  Receipt Date: 20180809
  Transmission Date: 20181010
  Serious: Yes (Other)
  Sender: FDA-Public Use
  Company Number: US-SA-2018SA200902

PATIENT
  Age: 24 Year
  Sex: Female

DRUGS (2)
  1. DUPILUMAB [Suspect]
     Active Substance: DUPILUMAB
     Indication: DERMATITIS ATOPIC
     Dosage: 2 DF, 1X
     Route: 058
  2. DUPILUMAB [Suspect]
     Active Substance: DUPILUMAB
     Dosage: 1 DF, QOW
     Route: 058
     Dates: start: 20180525

REACTIONS (13)
  - Erythema [Recovering/Resolving]
  - Dry skin [Recovering/Resolving]
  - Obstructive airways disorder [Recovering/Resolving]
  - Wheezing [Recovering/Resolving]
  - Dermatitis [Recovering/Resolving]
  - Dyspnoea [Recovering/Resolving]
  - Asthma [Recovering/Resolving]
  - Skin exfoliation [Recovering/Resolving]
  - Decreased appetite [Recovering/Resolving]
  - Asthma [Recovering/Resolving]
  - Rash [Recovering/Resolving]
  - Abdominal pain upper [Recovering/Resolving]
  - Pruritus [Recovering/Resolving]

NARRATIVE: CASE EVENT DATE: 201807
